FAERS Safety Report 5729181-4 (Version None)
Quarter: 2008Q2

REPORT INFORMATION
  Report Type: 
  Country: None (occurrence: None)
  Receive Date: 20080506
  Receipt Date: 20080428
  Transmission Date: 20081010
  Serious: Yes (Other)
  Sender: FDA-Public Use
  Company Number: FR-JNJFOC-20080305747

PATIENT
  Sex: Female

DRUGS (3)
  1. REMINYL LP [Suspect]
     Route: 048
  2. REMINYL LP [Suspect]
     Indication: DEMENTIA ALZHEIMER'S TYPE
     Route: 048
  3. DONORMYL [Concomitant]
     Indication: SLEEP DISORDER
     Route: 048

REACTIONS (1)
  - HEPATOTOXICITY [None]
